FAERS Safety Report 17565269 (Version 1)
Quarter: 2020Q1

REPORT INFORMATION
  Report Type: Spontaneous
  Country: SE (occurrence: SE)
  Receive Date: 20200320
  Receipt Date: 20200320
  Transmission Date: 20200409
  Serious: Yes (Other)
  Sender: FDA-Public Use
  Company Number: SE-BAYER-2020-044007

PATIENT
  Age: 23 Year
  Sex: Female
  Weight: 70 kg

DRUGS (1)
  1. JAYDESS [Suspect]
     Active Substance: LEVONORGESTREL
     Indication: CONTRACEPTION
     Dosage: 14?G PER DAY, CONTINUOUSLY
     Route: 015
     Dates: start: 201604, end: 201904

REACTIONS (6)
  - Acne cystic [Recovering/Resolving]
  - Mood altered [Recovering/Resolving]
  - Weight increased [Recovering/Resolving]
  - Ovarian cyst [Recovering/Resolving]
  - Pelvic pain [Recovering/Resolving]
  - Libido decreased [Recovering/Resolving]

NARRATIVE: CASE EVENT DATE: 201606
